FAERS Safety Report 6463105-X (Version None)
Quarter: 2009Q4

REPORT INFORMATION
  Report Type: 
  Country: None (occurrence: None)
  Receive Date: 20091130
  Receipt Date: 20091117
  Transmission Date: 20100525
  Serious: Yes (Hospitalization, Other)
  Sender: FDA-Public Use
  Company Number: US-ELI_LILLY_AND_COMPANY-US200911004400

PATIENT
  Sex: Female

DRUGS (4)
  1. CYMBALTA [Suspect]
     Indication: ANXIETY
     Dosage: 30 MG, DAILY (1/D)
     Dates: start: 20060601, end: 20090701
  2. CENTRUM SILVER [Concomitant]
     Dosage: 1 D/F, UNK
  3. CALTRATE [Concomitant]
     Dosage: 1 D/F, UNK
  4. ALCOHOL [Concomitant]

REACTIONS (26)
  - ANAEMIA [None]
  - ANAESTHESIA REVERSAL [None]
  - BONE DENSITY DECREASED [None]
  - CHOLELITHIASIS [None]
  - CHOLESTATIC PRURITUS [None]
  - CONSTIPATION [None]
  - GALLBLADDER DISORDER [None]
  - GRAND MAL CONVULSION [None]
  - HEART RATE INCREASED [None]
  - HEPATIC ENZYME INCREASED [None]
  - HEPATIC FAILURE [None]
  - HEPATOMEGALY [None]
  - JAUNDICE [None]
  - MIGRAINE [None]
  - NAUSEA [None]
  - OESOPHAGEAL VARICES HAEMORRHAGE [None]
  - OSTEOPOROSIS [None]
  - PANCREATITIS [None]
  - PRURITUS [None]
  - RESPIRATORY RATE INCREASED [None]
  - SPINAL FUSION SURGERY [None]
  - TOOTH DISORDER [None]
  - TRANSFUSION REACTION [None]
  - TRANSIENT ISCHAEMIC ATTACK [None]
  - VOMITING [None]
  - WEIGHT DECREASED [None]
